FAERS Safety Report 13461966 (Version 1)
Quarter: 2017Q2

REPORT INFORMATION
  Report Type: Spontaneous
  Country: US (occurrence: US)
  Receive Date: 20170420
  Receipt Date: 20170420
  Transmission Date: 20170830
  Serious: Yes (Hospitalization)
  Sender: FDA-Public Use
  Company Number: None

PATIENT
  Age: 19 Year
  Sex: Male
  Weight: 82.2 kg

DRUGS (6)
  1. DAUNORUBICIN [Suspect]
     Active Substance: DAUNORUBICIN
     Dates: end: 20170310
  2. PREDNISONE. [Suspect]
     Active Substance: PREDNISONE
     Dates: end: 20170315
  3. METHOTREXATE. [Suspect]
     Active Substance: METHOTREXATE
     Dates: end: 20170303
  4. ONCASPAR [Suspect]
     Active Substance: PEGASPARGASE
     Dates: end: 20170227
  5. CYTARABINE. [Suspect]
     Active Substance: CYTARABINE
     Dates: end: 20170223
  6. VINCRISTINE SULFATE. [Suspect]
     Active Substance: VINCRISTINE SULFATE
     Dates: end: 20170310

REACTIONS (11)
  - Syncope [None]
  - Hypoxia [None]
  - Pneumonia [None]
  - Tachycardia [None]
  - Hypotension [None]
  - Altered state of consciousness [None]
  - General physical health deterioration [None]
  - Sepsis [None]
  - Atelectasis [None]
  - Fall [None]
  - Pseudomonas test positive [None]

NARRATIVE: CASE EVENT DATE: 20170315
